FAERS Safety Report 25825273 (Version 3)
Quarter: 2025Q4

REPORT INFORMATION
  Report Type: Spontaneous
  Country: JP (occurrence: JP)
  Receive Date: 20250919
  Receipt Date: 20251204
  Transmission Date: 20260117
  Serious: Yes (Hospitalization, Other)
  Sender: ELI LILLY AND COMPANY
  Company Number: JP-ELI_LILLY_AND_COMPANY-JP202509015276

PATIENT
  Age: 59 Year
  Sex: Female
  Weight: 44.4 kg

DRUGS (6)
  1. OLUMIANT [Suspect]
     Active Substance: BARICITINIB
     Indication: Rheumatoid arthritis
     Dosage: 2 MG, DAILY
     Route: 048
     Dates: start: 20250121, end: 20250804
  2. SULFASALAZINE [Concomitant]
     Active Substance: SULFASALAZINE
     Indication: Rheumatoid arthritis
     Dosage: 1000 MG, DAILY
     Route: 048
     Dates: start: 20140318
  3. IGURATIMOD [Concomitant]
     Active Substance: IGURATIMOD
     Indication: Rheumatoid arthritis
     Dosage: 50 MG, DAILY
     Route: 048
     Dates: start: 20190513
  4. TOKAKUJOKITO [GLYCYRRHIZA SPP. ROOT;NEOLITSEA [Concomitant]
     Indication: Menopausal symptoms
     Dosage: 2.5 G, TID
     Route: 048
     Dates: start: 20181113
  5. SULFAMETHOXAZOLE\TRIMETHOPRIM [Concomitant]
     Active Substance: SULFAMETHOXAZOLE\TRIMETHOPRIM
     Indication: Prophylaxis
     Dosage: 0.5 DOSAGE FORM, DAILY
     Route: 048
     Dates: start: 20240604
  6. MONTELUKAST [Concomitant]
     Active Substance: MONTELUKAST
     Indication: Prophylaxis
     Dosage: 1 DOSAGE FORM, DAILY
     Route: 048
     Dates: start: 20240806

REACTIONS (2)
  - Colon cancer metastatic [Unknown]
  - Metastases to liver [Unknown]

NARRATIVE: CASE EVENT DATE: 20250804
